FAERS Safety Report 8556005-2 (Version None)
Quarter: 2012Q3

REPORT INFORMATION
  Report Type: 
  Country: None (occurrence: None)
  Receive Date: 20120801
  Receipt Date: 20120727
  Transmission Date: 20120928
  Serious: Yes (Hospitalization)
  Sender: FDA-Public Use
  Company Number: US-AMGEN-USASP2012046966

PATIENT
  Age: 61 Year
  Sex: Female

DRUGS (2)
  1. ENBREL [Suspect]
     Indication: RHEUMATOID ARTHRITIS
     Dosage: 50 MG, QWK
     Dates: start: 19980101
  2. SIMPONI [Concomitant]
     Dosage: UNK

REACTIONS (4)
  - OSTEOARTHRITIS [None]
  - POST PROCEDURAL COMPLICATION [None]
  - JOINT CAPSULE RUPTURE [None]
  - RHEUMATOID ARTHRITIS [None]
